FAERS Safety Report 23244879 (Version 1)
Quarter: 2023Q4

REPORT INFORMATION
  Report Type: Spontaneous
  Country: None (occurrence: CN)
  Receive Date: 20231130
  Receipt Date: 20231130
  Transmission Date: 20240110
  Serious: Yes (Other)
  Sender: FDA-Public Use
  Company Number: CN-Jiangsu Hengrui Medicine Co., Ltd.-2148836

PATIENT
  Age: 42 Year
  Sex: Female
  Weight: 53 kg

DRUGS (10)
  1. CISATRACURIUM BESYLATE [Suspect]
     Active Substance: CISATRACURIUM BESYLATE
     Indication: Induction of anaesthesia
     Route: 042
     Dates: start: 20231107, end: 20231107
  2. MANNITOL [Suspect]
     Active Substance: MANNITOL
     Route: 042
     Dates: start: 20231107, end: 20231107
  3. GLYCERIN\LECITHIN\MEDIUM-CHAIN TRIGLYCERIDES\SOYBEAN OIL [Suspect]
     Active Substance: GLYCERIN\LECITHIN\MEDIUM-CHAIN TRIGLYCERIDES\SOYBEAN OIL
     Route: 042
     Dates: start: 20231107, end: 20231107
  4. FENTANYL CITRATE [Suspect]
     Active Substance: FENTANYL CITRATE
     Route: 042
     Dates: start: 20231107, end: 20231107
  5. REMIFENTANIL HYDROCHLORIDE [Suspect]
     Active Substance: REMIFENTANIL HYDROCHLORIDE
     Route: 042
     Dates: start: 20231107, end: 20231107
  6. DEXMEDETOMIDINE HYDROCHLORIDE [Suspect]
     Active Substance: DEXMEDETOMIDINE HYDROCHLORIDE
     Route: 042
     Dates: start: 20231107, end: 20231107
  7. AZASETRON HYDROCHLORIDE [Suspect]
     Active Substance: AZASETRON HYDROCHLORIDE
     Route: 042
     Dates: start: 20231107, end: 20231107
  8. CALCIUM CHLORIDE, POTASSIUM CHLORIDE, SODIUM CHLORIDE [Concomitant]
     Route: 041
     Dates: start: 20231107, end: 20231107
  9. CALCIUM CHLORIDE\POTASSIUM CHLORIDE\SODIUM ACETATE [Concomitant]
     Active Substance: CALCIUM CHLORIDE\POTASSIUM CHLORIDE\SODIUM ACETATE
     Route: 041
     Dates: start: 20231107, end: 20231107
  10. ACETAMINOPHEN [Suspect]
     Active Substance: ACETAMINOPHEN

REACTIONS (2)
  - Vomiting [Recovering/Resolving]
  - Nausea [Recovering/Resolving]

NARRATIVE: CASE EVENT DATE: 20231107
